FAERS Safety Report 5842689-6 (Version None)
Quarter: 2008Q3

REPORT INFORMATION
  Report Type: 
  Country: None (occurrence: None)
  Receive Date: 20080808
  Receipt Date: 20080724
  Transmission Date: 20090109
  Serious: Yes (Hospitalization)
  Sender: FDA-Public Use
  Company Number: SPV1-2008-01578

PATIENT
  Age: 11 Year
  Sex: Male
  Weight: 30.8 kg

DRUGS (6)
  1. DAYTRANA [Suspect]
     Indication: AUTISM
     Dosage: 15 MG, 1X/DAY:QD TRANSDERMAL; 10 MG, 1X/DAY;QD, TRANSDERMAL
     Route: 062
     Dates: start: 20080601, end: 20080701
  2. DAYTRANA [Suspect]
     Indication: AUTISM
     Dosage: 15 MG, 1X/DAY:QD TRANSDERMAL; 10 MG, 1X/DAY;QD, TRANSDERMAL
     Route: 062
     Dates: start: 20080701
  3. ZOLOFT [Concomitant]
  4. DIFLUCAN [Concomitant]
  5. PROBIOTICS (BACTERIA NOS) [Concomitant]
  6. VITAMIN C /00008001/ (ASCORBIC ACID) [Concomitant]

REACTIONS (4)
  - APPLICATION SITE URTICARIA [None]
  - CONVULSION [None]
  - ENCEPHALITIS VIRAL [None]
  - OFF LABEL USE [None]
